FAERS Safety Report 8036905 (Version 2)
Quarter: 2013Q3

REPORT INFORMATION
  Report Type: Spontaneous
  Country: FR (occurrence: FR)
  Receive Date: 20110715
  Receipt Date: 20130719
  Transmission Date: 20140515
  Serious: Yes (Hospitalization)
  Sender: FDA-Public Use
  Company Number: FR-NOVOPROD-331630

PATIENT
  Age: 58 Year
  Sex: Male

DRUGS (4)
  1. VICTOZA INJECTION [Suspect]
     Indication: TYPE 2 DIABETES MELLITUS
     Dosage: 0.6 MG, QD
     Route: 058
     Dates: start: 20110614, end: 20110622
  2. IMOVAN [Concomitant]
     Dosage: UNK
     Route: 065
  3. MODECATE [Concomitant]
     Dosage: UNK
     Route: 065
  4. GLUCOPHAGE [Concomitant]
     Dosage: UNK
     Route: 065

REACTIONS (3)
  - Pancreatitis [Recovered/Resolved]
  - Abdominal pain upper [Recovered/Resolved]
  - Vomiting [Recovered/Resolved]
